FAERS Safety Report 14874648 (Version 1)
Quarter: 2018Q2

REPORT INFORMATION
  Report Type: Other
  Country: US (occurrence: US)
  Receive Date: 20180510
  Receipt Date: 20180510
  Transmission Date: 20180711
  Serious: Yes (Hospitalization)
  Sender: FDA-Public Use
  Company Number: US-B. BRAUN MEDICAL INC.-2047542

PATIENT
  Age: 67 Year
  Sex: Male

DRUGS (1)
  1. CEFAZOLIN FOR INJECTION USP AND DEXTROSE INJECTION USP 0264-3103-11 [Suspect]
     Active Substance: CEFAZOLIN\DEXTROSE

REACTIONS (1)
  - Tubulointerstitial nephritis [None]
